FAERS Safety Report 8691349 (Version 8)
Quarter: 2014Q1

REPORT INFORMATION
  Report Type: Spontaneous
  Country: BR (occurrence: BR)
  Receive Date: 20120730
  Receipt Date: 20140204
  Transmission Date: 20141002
  Serious: Yes (Disabling, Other)
  Sender: FDA-Public Use
  Company Number: PHHY2012BR062181

PATIENT
  Age: 46 Year
  Sex: Male
  Weight: 64 kg

DRUGS (6)
  1. STARLIX [Suspect]
     Indication: TYPE 2 DIABETES MELLITUS
     Dosage: 1 DF (ONE TABLET IN FASTING, ONE TABLET BEFORE LUNCH AND ONE TABLET BEFORE DINNER), TID
     Route: 048
  2. STARLIX [Suspect]
     Dosage: 1 DF (ONE TABLET IN THE MORNING, ONE TABLET IN THE AFTERNOON AND ONE TABLET AT NIGHT), , TID
     Route: 048
  3. STARLIX [Suspect]
     Dosage: UNK UKN, UNK
  4. METFORMIN [Concomitant]
     Indication: DIABETES MELLITUS
     Dosage: 850 MG, TID
     Route: 048
  5. GLUCOBAY [Concomitant]
     Indication: DIABETES MELLITUS
     Dosage: 50 MG, TID
     Route: 048
  6. GLIMEPIRIDE [Concomitant]
     Indication: DIABETES MELLITUS
     Dosage: 4 MG, BID
     Route: 048

REACTIONS (19)
  - Road traffic accident [Unknown]
  - Limb traumatic amputation [Unknown]
  - Syncope [Recovered/Resolved]
  - Osteonecrosis [Not Recovered/Not Resolved]
  - Osteomyelitis [Not Recovered/Not Resolved]
  - Soft tissue necrosis [Not Recovered/Not Resolved]
  - Deafness unilateral [Not Recovered/Not Resolved]
  - Diabetic retinopathy [Not Recovered/Not Resolved]
  - Visual impairment [Not Recovered/Not Resolved]
  - Vision blurred [Not Recovered/Not Resolved]
  - Eye pain [Not Recovered/Not Resolved]
  - Eye irritation [Not Recovered/Not Resolved]
  - Hyperglycaemia [Not Recovered/Not Resolved]
  - Somnolence [Not Recovered/Not Resolved]
  - Malaise [Not Recovered/Not Resolved]
  - Blood pressure abnormal [Unknown]
  - Fatigue [Not Recovered/Not Resolved]
  - Diarrhoea [Recovered/Resolved]
  - Drug ineffective [Not Recovered/Not Resolved]
